FAERS Safety Report 8005013-9 (Version None)
Quarter: 2011Q4

REPORT INFORMATION
  Report Type: 
  Country: None (occurrence: None)
  Receive Date: 20111223
  Receipt Date: 20111216
  Transmission Date: 20120403
  Serious: Yes (Hospitalization)
  Sender: FDA-Public Use
  Company Number: JP-JNJFOC-20111108432

PATIENT
  Sex: Female
  Weight: 38 kg

DRUGS (9)
  1. ONEALFA [Concomitant]
     Indication: OSTEOPOROSIS
     Dosage: 0.5 UG X 1 PER 1 DAY
     Route: 048
     Dates: end: 20111116
  2. NORVASC [Concomitant]
     Indication: HYPERTENSION
     Dosage: 5.0 MG X 1 PER 1 DAY
     Route: 048
     Dates: end: 20111115
  3. ZOLPIDEM [Concomitant]
     Indication: INSOMNIA
     Dosage: 5.0 MG X 1 PER 1 DAY
     Route: 048
     Dates: end: 20111116
  4. RISEDRONATE SODIUM [Concomitant]
     Indication: OSTEOPOROSIS
     Dosage: 17.5 MG X 1 PER 1 WEEK
     Route: 048
     Dates: end: 20111114
  5. TRAMADOL HYDROCHLORIDE/ACETAMINOPHEN [Suspect]
     Indication: PAIN
     Dosage: 1 PER 1 DAY
     Route: 048
     Dates: start: 20111012, end: 20111115
  6. CALCIUM CARBONATE [Concomitant]
     Indication: INSOMNIA
     Dosage: 500.0 MG X 1 PER 1 DAY
     Route: 048
     Dates: end: 20111115
  7. DIGOXIN [Suspect]
     Indication: ATRIAL FIBRILLATION
     Dosage: 0.5 DF X 1 PER 1 DAY
     Route: 048
     Dates: start: 20110912
  8. LIPITOR [Concomitant]
     Indication: HYPERLIPIDAEMIA
     Dosage: 5.0 MG X 1 PER 1 DAY
     Route: 048
     Dates: end: 20111115
  9. PRADAXA [Suspect]
     Indication: ATRIAL FIBRILLATION
     Dosage: 1 PER 1 DAY
     Route: 048
     Dates: start: 20110912, end: 20111115

REACTIONS (1)
  - PNEUMONIA [None]
